FAERS Safety Report 4989162-5 (Version None)
Quarter: 2006Q2

REPORT INFORMATION
  Report Type: 
  Country: None (occurrence: None)
  Receive Date: 20060425
  Receipt Date: 20060411
  Transmission Date: 20061013
  Serious: Yes (Other)
  Sender: FDA-Public Use
  Company Number: 2006050905

PATIENT
  Sex: Female
  Weight: 89.3586 kg

DRUGS (4)
  1. ZOLOFT [Suspect]
     Indication: ANXIETY
     Dosage: 100 MG (100 MG, QD INTERVAL: EVERY DAY); ORAL
     Route: 048
  2. LYRICA [Suspect]
     Indication: PAIN
     Dates: start: 20051101
  3. DARVOCET [Suspect]
     Indication: ILL-DEFINED DISORDER
     Dosage: UNK (100 MG, PRN) UNKNOWN
  4. VALIUM [Concomitant]

REACTIONS (14)
  - ACTIVITIES OF DAILY LIVING IMPAIRED [None]
  - ANXIETY [None]
  - ARTHRITIS [None]
  - COORDINATION ABNORMAL [None]
  - DISTURBANCE IN ATTENTION [None]
  - DIZZINESS [None]
  - DRUG EFFECT DECREASED [None]
  - FIBROMYALGIA [None]
  - FULL BLOOD COUNT DECREASED [None]
  - INTERVERTEBRAL DISC DEGENERATION [None]
  - SEDATION [None]
  - SOMNOLENCE [None]
  - VISION BLURRED [None]
  - VISUAL DISTURBANCE [None]
